FAERS Safety Report 9689888 (Version 1)
Quarter: 2013Q4

REPORT INFORMATION
  Report Type: Spontaneous
  Country: US (occurrence: US)
  Receive Date: 20131115
  Receipt Date: 20131115
  Transmission Date: 20140711
  Serious: No
  Sender: FDA-Public Use
  Company Number: US-PFIZER INC-2013326464

PATIENT
  Sex: Male

DRUGS (1)
  1. AMIODARONE HCL [Suspect]
     Dosage: UNK

REACTIONS (11)
  - Asthenia [Unknown]
  - Temperature intolerance [Unknown]
  - Nervousness [Unknown]
  - Agitation [Unknown]
  - Parkinsonism [Unknown]
  - Dyskinesia [Unknown]
  - Heart rate abnormal [Unknown]
  - Paraesthesia [Unknown]
  - Disturbance in attention [Unknown]
  - Tremor [Unknown]
  - Irritability [Unknown]
